FAERS Safety Report 15619903 (Version 1)
Quarter: 2018Q4

REPORT INFORMATION
  Report Type: Report from Study
  Country: US (occurrence: US)
  Receive Date: 20181115
  Receipt Date: 20181115
  Transmission Date: 20190205
  Serious: Yes (Death, Hospitalization)
  Sender: FDA-Public Use
  Company Number: US-TEVA-2018-US-975281

PATIENT
  Age: 87 Year
  Sex: Female

DRUGS (2)
  1. LABETALOL [Suspect]
     Active Substance: LABETALOL\LABETALOL HYDROCHLORIDE
     Route: 048
  2. CARVEDILOL. [Suspect]
     Active Substance: CARVEDILOL
     Route: 048

REACTIONS (6)
  - Hypotension [Unknown]
  - Toxicity to various agents [Unknown]
  - Seizure [Unknown]
  - Cardiac arrest [Fatal]
  - Bradycardia [Unknown]
  - Overdose [Unknown]

NARRATIVE: CASE EVENT DATE: 2013
